FAERS Safety Report 8519174-6 (Version None)
Quarter: 2012Q3

REPORT INFORMATION
  Report Type: 
  Country: None (occurrence: None)
  Receive Date: 20120718
  Receipt Date: 20120706
  Transmission Date: 20120928
  Serious: Yes (Hospitalization)
  Sender: FDA-Public Use
  Company Number: TR-ALEXION PHARMACEUTICALS INC.-A201201209

PATIENT
  Age: 25 Year
  Sex: Female

DRUGS (5)
  1. FUROSEMIDE [Concomitant]
     Dosage: UNK MG, UNK
  2. SOLIRIS [Suspect]
     Indication: THROMBOSIS
  3. SOLIRIS [Suspect]
     Indication: PAROXYSMAL NOCTURNAL HAEMOGLOBINURIA
     Dosage: 900 MG, EVERY 15 DAYS
     Route: 042
     Dates: start: 20100901, end: 20120101
  4. SOLIRIS [Suspect]
     Indication: BLOOD PRODUCT TRANSFUSION DEPENDENT
  5. SPIRONOLACTONE [Concomitant]

REACTIONS (6)
  - INFUSION RELATED REACTION [None]
  - LARYNGEAL OEDEMA [None]
  - LARYNGOSPASM [None]
  - FLUSHING [None]
  - ANAPHYLACTIC REACTION [None]
  - DYSPNOEA [None]
